FAERS Safety Report 5743971-3 (Version None)
Quarter: 2008Q2

REPORT INFORMATION
  Report Type: 
  Country: None (occurrence: None)
  Receive Date: 20080520
  Receipt Date: 20080515
  Transmission Date: 20081010
  Serious: Yes (Death, Hospitalization, Other)
  Sender: FDA-Public Use
  Company Number: US-TEVA-171614USA

PATIENT
  Age: 31 Year
  Sex: Female

DRUGS (2)
  1. MERCAPTOPURINE [Suspect]
     Route: 048
  2. VITAMIN TAB [Concomitant]
     Indication: PREGNANCY
     Route: 048

REACTIONS (6)
  - ABORTION SPONTANEOUS [None]
  - FATIGUE [None]
  - HAEMORRHAGE [None]
  - MEDICATION ERROR [None]
  - PYREXIA [None]
  - SEPSIS [None]
